FAERS Safety Report 5336711-3 (Version None)
Quarter: 2007Q2

REPORT INFORMATION
  Report Type: 
  Country: None (occurrence: None)
  Receive Date: 20070529
  Receipt Date: 20070523
  Transmission Date: 20071010
  Serious: Yes (Hospitalization)
  Sender: FDA-Public Use
  Company Number: CN-BAYER-200712904GDS

PATIENT
  Age: 81 Year
  Sex: Female

DRUGS (1)
  1. NEXAVAR [Suspect]
     Indication: RENAL CELL CARCINOMA STAGE UNSPECIFIED
     Dosage: TOTAL DAILY DOSE: 800 MG
     Route: 048
     Dates: start: 20070101

REACTIONS (8)
  - DISTURBANCE IN ATTENTION [None]
  - ECZEMA ASTEATOTIC [None]
  - ELECTROLYTE IMBALANCE [None]
  - FATIGUE [None]
  - NAUSEA [None]
  - RASH [None]
  - SKIN EXFOLIATION [None]
  - VOMITING [None]
